FAERS Safety Report 9733539 (Version 2)
Quarter: 2013Q4

REPORT INFORMATION
  Report Type: Spontaneous
  Country: JP (occurrence: JP)
  Receive Date: 20131205
  Receipt Date: 20131205
  Transmission Date: 20140711
  Serious: Yes (Hospitalization)
  Sender: FDA-Public Use
  Company Number: JP-BAYER-2013-145957

PATIENT
  Sex: Female

DRUGS (2)
  1. NEXAVAR [Suspect]
     Indication: RENAL CELL CARCINOMA
     Dosage: DAILY DOSE 800 MG
     Route: 048
  2. NEXAVAR [Suspect]
     Indication: RENAL CELL CARCINOMA
     Dosage: DOSE REDUCED

REACTIONS (2)
  - Hepatic function abnormal [Unknown]
  - Rash [Unknown]
